FAERS Safety Report 8183926-5 (Version None)
Quarter: 2012Q1

REPORT INFORMATION
  Report Type: 
  Country: None (occurrence: None)
  Receive Date: 20120305
  Receipt Date: 20120302
  Transmission Date: 20120608
  Serious: Yes (Hospitalization)
  Sender: FDA-Public Use
  Company Number: DE-ROCHE-1038520

PATIENT
  Sex: Female
  Weight: 90 kg

DRUGS (5)
  1. THYROX [Concomitant]
     Dosage: 50/150
     Dates: start: 20020301
  2. HERCEPTIN [Suspect]
     Indication: BREAST CANCER
     Dosage: DATE OF LAST DOSE PRIOR TO SAE, 01 FEB 2012
     Route: 042
     Dates: start: 20111123, end: 20120208
  3. LAPATINIB [Suspect]
     Indication: BREAST CANCER
     Dosage: DATE OF LAST DOSE PRIOR TO SAE, 07 FEB 2012
     Route: 048
     Dates: start: 20111123, end: 20120208
  4. DOXORUBICIN HCL [Suspect]
     Indication: BREAST CANCER
     Dosage: DATE OF LAST DOSE PRIOR TO SAE, 01 FEB 2012
     Route: 042
     Dates: start: 20111123, end: 20120208
  5. PACLITAXEL [Suspect]
     Indication: BREAST CANCER
     Dosage: DATE OF LAST DOSE PRIOR TO SAE, 01 FEB 2012
     Route: 042
     Dates: start: 20111123, end: 20120208

REACTIONS (1)
  - PNEUMONIA [None]
